FAERS Safety Report 9626247 (Version 2)
Quarter: 2013Q4

REPORT INFORMATION
  Report Type: Spontaneous
  Country: US (occurrence: US)
  Receive Date: 20131016
  Receipt Date: 20131016
  Transmission Date: 20140711
  Serious: Yes (Hospitalization)
  Sender: FDA-Public Use
  Company Number: US-JNJFOC-20130907182

PATIENT
  Age: 85 Year
  Sex: Male
  Weight: 63.5 kg

DRUGS (13)
  1. XARELTO [Suspect]
     Indication: CEREBROVASCULAR ACCIDENT PROPHYLAXIS
     Route: 048
     Dates: start: 20130801
  2. XARELTO [Suspect]
     Indication: ATRIAL FIBRILLATION
     Route: 048
     Dates: start: 20130801
  3. CALCIUM [Concomitant]
     Route: 065
  4. DIOVAN [Concomitant]
     Indication: BLOOD PRESSURE
     Route: 065
  5. TAMSULOSIN [Concomitant]
     Indication: PROSTATIC DISORDER
     Route: 065
  6. ASMANEX [Concomitant]
     Indication: ASTHMA
     Route: 065
  7. ALBUTEROL [Concomitant]
     Indication: ASTHMA
     Route: 065
  8. GAMMAGLOBULIN [Concomitant]
     Indication: IMMUNE SYSTEM DISORDER
     Route: 065
  9. SINGULAIR [Concomitant]
     Route: 065
  10. OMEPRAZOLE [Concomitant]
     Route: 065
  11. SIMVASTATIN [Concomitant]
     Route: 065
  12. GABAPENTIN [Concomitant]
     Route: 065
  13. PREDNISONE [Concomitant]
     Route: 065

REACTIONS (4)
  - Hospitalisation [Unknown]
  - Dyspnoea [Unknown]
  - Drug dose omission [Not Recovered/Not Resolved]
  - Dyspepsia [Not Recovered/Not Resolved]
